FAERS Safety Report 6475932-3 (Version None)
Quarter: 2009Q4

REPORT INFORMATION
  Report Type: 
  Country: None (occurrence: None)
  Receive Date: 20091204
  Receipt Date: 20091112
  Transmission Date: 20100525
  Serious: No
  Sender: FDA-Public Use
  Company Number: US-GENENTECH-294187

PATIENT
  Sex: Female
  Weight: 122 kg

DRUGS (7)
  1. XOLAIR [Suspect]
     Indication: STATUS ASTHMATICUS
     Dosage: 375 MG, Q2W
     Route: 058
     Dates: start: 20070612, end: 20091001
  2. SINGULAIR [Concomitant]
     Indication: HYPERSENSITIVITY
     Dosage: 10 MG, QD
     Route: 048
  3. SYNTHROID [Concomitant]
     Indication: HYPOTHYROIDISM
     Dosage: 100 MG, QD
     Route: 048
  4. NASONEX [Concomitant]
     Indication: HYPERSENSITIVITY
     Dosage: UNK PUFF, QD
  5. QVAR 40 [Concomitant]
     Indication: ASTHMA
     Dosage: UNK
  6. NEXIUM [Concomitant]
     Indication: GASTROOESOPHAGEAL REFLUX DISEASE
     Dosage: 40 MG, QD
     Route: 048
  7. ALBUTEROL [Concomitant]
     Indication: ASTHMA
     Dosage: UNK PUFF, PRN

REACTIONS (3)
  - PARAESTHESIA ORAL [None]
  - PRURITUS GENERALISED [None]
  - RASH [None]
